FAERS Safety Report 7083283 (Version 31)
Quarter: 2014Q2

REPORT INFORMATION
  Report Type: Spontaneous
  Country: US (occurrence: US)
  Receive Date: 20090817
  Receipt Date: 20140612
  Transmission Date: 20141212
  Serious: Yes (Hospitalization, Other)
  Sender: FDA-Public Use
  Company Number: PHEH2009US09109

PATIENT
  Sex: Female

DRUGS (24)
  1. ZOMETA [Suspect]
     Indication: PLASMA CELL MYELOMA
     Dosage: 4 MG, QMO
     Route: 041
     Dates: end: 200505
  2. AREDIA [Suspect]
     Indication: PLASMA CELL MYELOMA
     Dosage: 90 MG,
     Route: 042
  3. NEXIUM [Concomitant]
  4. GLUCOSAMINE [Concomitant]
  5. ZOLOFT [Concomitant]
  6. ARANESP [Concomitant]
  7. PLAQUENIL [Concomitant]
  8. DIATX [Concomitant]
  9. SODIUM BICARBONATE [Concomitant]
  10. AMITRIPTYLINE [Concomitant]
  11. VITAMIN C [Concomitant]
  12. COREG [Concomitant]
  13. TETRACYCLINE HYDROCHLORIDE [Concomitant]
  14. PERCOCET [Concomitant]
  15. CLINDAMYCIN [Concomitant]
     Dosage: 2 DF, TID
  16. KEFLEX                                  /USA/ [Concomitant]
  17. PREDNISONE [Concomitant]
  18. ARICEPT [Concomitant]
  19. HYDROCODONE [Concomitant]
  20. COZAAR [Concomitant]
  21. IMMUNOSUPPRESSANTS [Concomitant]
  22. PROTONIX [Concomitant]
     Dosage: 40 MG, QD
     Route: 048
  23. NIFEREX [Concomitant]
     Dosage: 150 MG, QD
     Route: 048
  24. HYDROCORTISONE [Concomitant]
     Dosage: 1 DF, Q4H, PRN
     Route: 048

REACTIONS (143)
  - Pleural effusion [Unknown]
  - Otorrhoea [Unknown]
  - Cardiac failure congestive [Unknown]
  - Dyspnoea [Unknown]
  - Renal failure [Unknown]
  - Osteonecrosis of jaw [Unknown]
  - Pain [Unknown]
  - Infection [Unknown]
  - Deformity [Unknown]
  - General physical health deterioration [Unknown]
  - Anxiety [Unknown]
  - Mouth ulceration [Unknown]
  - Oral pain [Unknown]
  - Exposed bone in jaw [Unknown]
  - Primary sequestrum [Unknown]
  - Gingival pain [Unknown]
  - Pericardial effusion [Unknown]
  - Right atrial dilatation [Unknown]
  - Peroneal nerve palsy [Unknown]
  - Pericarditis [Unknown]
  - Cardiac tamponade [Unknown]
  - Mitral valve incompetence [Unknown]
  - Tricuspid valve incompetence [Unknown]
  - Congestive cardiomyopathy [Unknown]
  - Herpes zoster [Unknown]
  - Pneumonia [Unknown]
  - Hypertension [Unknown]
  - Skin ulcer [Unknown]
  - Osteomyelitis [Unknown]
  - Neuropathy peripheral [Unknown]
  - Fall [Unknown]
  - Limb injury [Unknown]
  - Paralysis [Unknown]
  - Pelvic fracture [Unknown]
  - Depression [Unknown]
  - Arthralgia [Unknown]
  - Pleurisy [Unknown]
  - Photosensitivity reaction [Unknown]
  - Osteopenia [Unknown]
  - Hypotension [Unknown]
  - Renal atrophy [Unknown]
  - Homocystinaemia [Unknown]
  - Metabolic acidosis [Unknown]
  - Malnutrition [Unknown]
  - Lower extremity mass [Recovered/Resolved]
  - Tachycardia [Unknown]
  - Serositis [Unknown]
  - Deafness [Unknown]
  - Osteoporosis [Unknown]
  - Panic attack [Unknown]
  - Interstitial lung disease [Unknown]
  - Upper respiratory tract infection [Unknown]
  - Haematoma [Unknown]
  - Gastrooesophageal reflux disease [Unknown]
  - Anaemia [Unknown]
  - Proteinuria [Unknown]
  - Pain in extremity [Unknown]
  - Immune thrombocytopenic purpura [Unknown]
  - Hyperkeratosis [Unknown]
  - Necrosis [Unknown]
  - Weight decreased [Unknown]
  - Decubitus ulcer [Unknown]
  - Thyroid neoplasm [Unknown]
  - Parathyroid tumour benign [Unknown]
  - Peripheral swelling [Unknown]
  - Joint swelling [Unknown]
  - Dysphonia [Unknown]
  - Gait disturbance [Unknown]
  - Lordosis [Unknown]
  - Biliary dilatation [Unknown]
  - Sinus tachycardia [Unknown]
  - Renal failure chronic [Unknown]
  - Sciatic nerve palsy [Unknown]
  - Pneumothorax [Unknown]
  - Hypokinesia [Unknown]
  - Haemorrhoids [Unknown]
  - Liver function test abnormal [Unknown]
  - Aortic valve incompetence [Unknown]
  - Pulmonary valve incompetence [Unknown]
  - Pulmonary hypertension [Unknown]
  - Aneurysm [Unknown]
  - Thrombosis [Unknown]
  - Aortic arteriosclerosis [Unknown]
  - Mitral valve calcification [Unknown]
  - Osteolysis [Unknown]
  - Musculoskeletal stiffness [Unknown]
  - Diarrhoea [Unknown]
  - Constipation [Unknown]
  - Cough [Unknown]
  - Decreased appetite [Unknown]
  - Insomnia [Unknown]
  - Seasonal allergy [Unknown]
  - Sinus congestion [Unknown]
  - Dilatation ventricular [Unknown]
  - Night sweats [Unknown]
  - Abasia [Unknown]
  - Muscle spasms [Unknown]
  - Alopecia [Unknown]
  - Myalgia [Unknown]
  - Intermittent claudication [Unknown]
  - Dehydration [Unknown]
  - Chest pain [Unknown]
  - Hyperhidrosis [Unknown]
  - Acetabulum fracture [Unknown]
  - Osteoarthritis [Unknown]
  - Ejection fraction decreased [Unknown]
  - Bone infarction [Unknown]
  - Intervertebral disc degeneration [Unknown]
  - Otitis media [Unknown]
  - Tympanic membrane perforation [Unknown]
  - Pancreatic duct dilatation [Unknown]
  - Candida infection [Unknown]
  - Hip fracture [Unknown]
  - Osteonecrosis [Unknown]
  - Arthritis [Unknown]
  - Trismus [Unknown]
  - Excessive granulation tissue [Unknown]
  - Bone disorder [Unknown]
  - Hypoaesthesia [Unknown]
  - Spinal osteoarthritis [Unknown]
  - Scoliosis [Unknown]
  - Renal mass [Unknown]
  - Stress fracture [Unknown]
  - Radiculopathy [Unknown]
  - Oral disorder [Unknown]
  - Lymphadenopathy [Unknown]
  - Foot deformity [Unknown]
  - Vertigo [Unknown]
  - Neuropathic ulcer [Unknown]
  - Hypovolaemia [Unknown]
  - Urinary incontinence [Unknown]
  - Nausea [Unknown]
  - Vomiting [Unknown]
  - Pain in jaw [Unknown]
  - Bone swelling [Unknown]
  - Dysgeusia [Unknown]
  - Mastication disorder [Unknown]
  - Stomatitis [Unknown]
  - Purulence [Unknown]
  - Neck mass [Unknown]
  - Bone loss [Unknown]
  - Paraesthesia [Unknown]
  - Tongue ulceration [Unknown]
